FAERS Safety Report 8587633-6 (Version None)
Quarter: 2012Q3

REPORT INFORMATION
  Report Type: 
  Country: None (occurrence: None)
  Receive Date: 20120811
  Receipt Date: 20120731
  Transmission Date: 20120928
  Serious: No
  Sender: FDA-Public Use
  Company Number: US-ASTRAZENECA-2012SE54047

PATIENT
  Age: 84 Year
  Sex: Male
  Weight: 87.1 kg

DRUGS (5)
  1. CARTIA XT [Concomitant]
  2. SYMBICORT [Suspect]
     Indication: DYSPNOEA
     Dosage: 2 PUFFS TWICE A DAY
     Route: 055
     Dates: start: 20120516
  3. LEVOTHYROXINE SODIUM [Concomitant]
     Indication: THYROID DISORDER
  4. ATENOLOL [Concomitant]
     Indication: BLOOD PRESSURE ABNORMAL
  5. LANSOPRAZOLE [Concomitant]
     Indication: GASTROOESOPHAGEAL REFLUX DISEASE

REACTIONS (6)
  - DYSPHONIA [None]
  - SPEECH DISORDER [None]
  - DRUG INEFFECTIVE [None]
  - PHARYNGEAL OEDEMA [None]
  - OROPHARYNGITIS FUNGAL [None]
  - LARYNGEAL OEDEMA [None]
